FAERS Safety Report 8492860-2 (Version None)
Quarter: 2012Q3

REPORT INFORMATION
  Report Type: 
  Country: None (occurrence: None)
  Receive Date: 20120706
  Receipt Date: 20120630
  Transmission Date: 20120928
  Serious: Yes (Other)
  Sender: FDA-Public Use
  Company Number: US-JNJFOC-20120506840

PATIENT
  Age: 67 Year
  Sex: Male

DRUGS (2)
  1. SIMPONI [Suspect]
     Indication: PRODUCT USED FOR UNKNOWN INDICATION
     Route: 058
     Dates: start: 20120410
  2. SIMPONI [Suspect]
     Route: 058
     Dates: start: 20090611

REACTIONS (1)
  - BASOSQUAMOUS CARCINOMA [None]
